FAERS Safety Report 4894701-9 (Version None)
Quarter: 2006Q1

REPORT INFORMATION
  Report Type: 
  Country: None (occurrence: None)
  Receive Date: 20060127
  Receipt Date: 20060127
  Transmission Date: 20060701
  Serious: No
  Sender: FDA-Public Use
  Company Number: None

PATIENT
  Sex: Female
  Weight: 73.9363 kg

DRUGS (1)
  1. PROZAC [Suspect]
     Indication: DEPRESSION
     Dosage: 20 MG ONE DAILY PO
     Route: 048
     Dates: start: 20020101

REACTIONS (3)
  - CRYING [None]
  - DRUG INEFFECTIVE [None]
  - NAUSEA [None]
